FAERS Safety Report 22177862 (Version 1)
Quarter: 2023Q2

REPORT INFORMATION
  Report Type: Other
  Country: None (occurrence: US)
  Receive Date: 20230405
  Receipt Date: 20230405
  Transmission Date: 20230722
  Serious: Yes (Hospitalization, Other)
  Sender: FDA-Public Use
  Company Number: US-Breckenridge Pharmaceutical, Inc.-2139931

PATIENT
  Age: 76 Year
  Sex: Female

DRUGS (1)
  1. LEVETIRACETAM [Suspect]
     Active Substance: LEVETIRACETAM
     Indication: Partial seizures
     Route: 048

REACTIONS (4)
  - Autoimmune hepatitis [Recovering/Resolving]
  - Encephalopathy [Recovered/Resolved]
  - Blood creatinine increased [Unknown]
  - Liver function test abnormal [Recovering/Resolving]
